FAERS Safety Report 9865517 (Version 2)
Quarter: 2014Q1

REPORT INFORMATION
  Report Type: Spontaneous
  Country: US (occurrence: US)
  Receive Date: 20140203
  Receipt Date: 20140203
  Transmission Date: 20141002
  Serious: No
  Sender: FDA-Public Use
  Company Number: US-ALLERGAN-1304962US

PATIENT
  Sex: Female

DRUGS (5)
  1. RESTASIS [Suspect]
     Indication: DRY EYE
     Dosage: 2 GTT, BID
     Dates: start: 20130324
  2. ORENCIA [Concomitant]
     Indication: RHEUMATOID ARTHRITIS
     Dosage: ONCE A WEEK
  3. METHOTREXATE [Concomitant]
     Indication: RHEUMATOID ARTHRITIS
     Dosage: 10 UNK, UNK
  4. REFRESH OPTIVE [Concomitant]
     Indication: EYE LUBRICATION THERAPY
     Dosage: EVERY TWO HOURS
  5. SYSTANE [Concomitant]
     Indication: EYE LUBRICATION THERAPY
     Dosage: EVERY TWO HOURS

REACTIONS (2)
  - Dry skin [Not Recovered/Not Resolved]
  - Lacrimation increased [Not Recovered/Not Resolved]
